FAERS Safety Report 6697577-2 (Version None)
Quarter: 2010Q2

REPORT INFORMATION
  Report Type: 
  Country: None (occurrence: None)
  Receive Date: 20100426
  Receipt Date: 20091111
  Transmission Date: 20101027
  Serious: No
  Sender: FDA-Public Use
  Company Number: US-ABBOTT-09P-163-0608861-00

PATIENT
  Sex: Female
  Weight: 75.364 kg

DRUGS (7)
  1. AZMACORT [Suspect]
     Indication: BRONCHIECTASIS
  2. MAXAIR [Concomitant]
     Indication: DRUG USE FOR UNKNOWN INDICATION
  3. SPIRIVA [Concomitant]
     Indication: DRUG USE FOR UNKNOWN INDICATION
  4. NEXIUM [Concomitant]
     Indication: DRUG USE FOR UNKNOWN INDICATION
  5. LASIX [Concomitant]
     Indication: FLUID RETENTION
  6. VALIUM [Concomitant]
     Indication: DRUG USE FOR UNKNOWN INDICATION
  7. TALZON [Concomitant]
     Indication: FLUID RETENTION

REACTIONS (1)
  - DYSPHONIA [None]
